FAERS Safety Report 16823139 (Version 2)
Quarter: 2019Q4

REPORT INFORMATION
  Report Type: Report from Study
  Country: US (occurrence: US)
  Receive Date: 20190918
  Receipt Date: 20191004
  Transmission Date: 20200122
  Serious: Yes (Death, Other)
  Sender: FDA-Public Use
  Company Number: US-SA-2019SA258925

PATIENT
  Age: 52 Year
  Sex: Male

DRUGS (1)
  1. ALEMTUZUMAB [Suspect]
     Active Substance: ALEMTUZUMAB
     Dosage: 12 MG, QD
     Route: 041
     Dates: start: 20181029, end: 20181102

REACTIONS (1)
  - Amyotrophic lateral sclerosis [Fatal]
